FAERS Safety Report 10687823 (Version 1)
Quarter: 2015Q1

REPORT INFORMATION
  Report Type: Spontaneous
  Country: US (occurrence: US)
  Receive Date: 20150102
  Receipt Date: 20150102
  Transmission Date: 20150720
  Serious: Yes (Other)
  Sender: FDA-Public Use
  Company Number: US-PFIZER INC-2014352637

PATIENT
  Sex: Male

DRUGS (1)
  1. CHILDRENS DIMETAPP COLD AND COUGH [Suspect]
     Active Substance: BROMPHENIRAMINE MALEATE\DEXTROMETHORPHAN HYDROBROMIDE\PHENYLEPHRINE HYDROCHLORIDE
     Indication: MALAISE
     Dosage: UNK

REACTIONS (1)
  - Pneumonia [Unknown]
